FAERS Safety Report 20789409 (Version 1)
Quarter: 2022Q2

REPORT INFORMATION
  Report Type: Spontaneous
  Country: CA (occurrence: None)
  Receive Date: 20220504
  Receipt Date: 20220504
  Transmission Date: 20220720
  Serious: Yes (Other)
  Sender: FDA-Public Use
  Company Number: None

PATIENT
  Age: 69 Year
  Sex: Female
  Weight: 88.3 kg

DRUGS (17)
  1. LISINOPRIL [Suspect]
     Active Substance: LISINOPRIL
     Indication: Cardiac failure congestive
     Dosage: OTHER QUANTITY : 1 TABLET(S);?FREQUENCY : DAILY;?
     Route: 048
  2. SORIAL [Concomitant]
  3. APIXABAN [Concomitant]
     Active Substance: APIXABAN
  4. DIVALPROEX SODIUM [Concomitant]
     Active Substance: DIVALPROEX SODIUM
  5. LEVOTHYROXINE [Concomitant]
     Active Substance: LEVOTHYROXINE
  6. LINACLOTIDE [Concomitant]
     Active Substance: LINACLOTIDE
  7. MIRABEGRON [Concomitant]
     Active Substance: MIRABEGRON
  8. PANTOPRAZOLE [Concomitant]
     Active Substance: PANTOPRAZOLE
  9. PIZOTYLINE [Concomitant]
     Active Substance: PIZOTYLINE
  10. PYRIDOXINE [Concomitant]
     Active Substance: PYRIDOXINE
  11. ROSUVASTATIN [Concomitant]
  12. TROSPIUM [Concomitant]
  13. OMNARIS [Concomitant]
  14. breo-elipta [Concomitant]
  15. VITAMIN C [Concomitant]
     Active Substance: ASCORBIC ACID
  16. occasional nsaid [Concomitant]
  17. lactade [Concomitant]

REACTIONS (4)
  - Fall [None]
  - Hypotension [None]
  - Tremor [None]
  - Loss of personal independence in daily activities [None]

NARRATIVE: CASE EVENT DATE: 20190201
